FAERS Safety Report 6897001-0 (Version None)
Quarter: 2010Q3

REPORT INFORMATION
  Report Type: 
  Country: None (occurrence: None)
  Receive Date: 20100802
  Receipt Date: 20070305
  Transmission Date: 20110219
  Serious: No
  Sender: FDA-Public Use
  Company Number: US-PFIZER INC-2007018457

PATIENT
  Sex: Male
  Weight: 83 kg

DRUGS (8)
  1. LYRICA [Suspect]
     Indication: PAIN IN EXTREMITY
     Dates: start: 20070212
  2. LYRICA [Suspect]
     Indication: MUSCLE SPASMS
  3. GLIPIZIDE [Concomitant]
  4. SIMVASTATIN [Concomitant]
  5. FELODIPINE [Concomitant]
  6. ATENOLOL [Concomitant]
  7. LISINOPRIL [Concomitant]
  8. ANTIDEPRESSANTS [Suspect]

REACTIONS (2)
  - CONSTIPATION [None]
  - FATIGUE [None]
